FAERS Safety Report 4526379-8 (Version None)
Quarter: 2004Q4

REPORT INFORMATION
  Report Type: 
  Country: None (occurrence: None)
  Receive Date: 20041210
  Receipt Date: 20041208
  Transmission Date: 20050328
  Serious: Yes (Other)
  Sender: FDA-Public Use
  Company Number: THQ2004A01011

PATIENT
  Age: 63 Year
  Sex: Male

DRUGS (6)
  1. LANSOPRAZOLE [Suspect]
     Dosage: 15 MG (15 MG, 1 IN 1 D)
  2. SIMVASTATIN [Suspect]
     Dosage: 10 MG (10 MG, 1 IN 1 D) PER ORAL
     Route: 048
     Dates: start: 20040128, end: 20040413
  3. NITRODERM [Concomitant]
  4. DISINOR RETARD (DILTIAZEM) [Concomitant]
  5. UROLOSIN (TAMSULOSIN HYDROCHLORIDE) (CAPSULES) [Concomitant]
  6. KARVEZIDE (KARVEA HCT) [Concomitant]

REACTIONS (3)
  - BLOOD CREATINE PHOSPHOKINASE INCREASED [None]
  - GAMMA-GLUTAMYLTRANSFERASE INCREASED [None]
  - HEPATIC ENZYME INCREASED [None]
